FAERS Safety Report 9251067 (Version 2)
Quarter: 2013Q2

REPORT INFORMATION
  Report Type: Report from Study
  Country: US (occurrence: US)
  Receive Date: 20130424
  Receipt Date: 20130503
  Transmission Date: 20140414
  Serious: Yes (Other)
  Sender: FDA-Public Use
  Company Number: US-ROCHE-1217268

PATIENT
  Age: 59 Year
  Sex: Female
  Weight: 75.2 kg

DRUGS (2)
  1. BEVACIZUMAB [Suspect]
     Indication: OVARIAN EPITHELIAL CANCER
     Dosage: LAST DOSE PRIOR TO SAE ON 29/MAR/2013
     Route: 065
     Dates: start: 20120607
  2. BLINDED EVEROLIMUS [Suspect]
     Indication: OVARIAN EPITHELIAL CANCER
     Dosage: LAST DOSE PRIOR TO SAE ON 28/SEP/2012
     Route: 065
     Dates: start: 20120607

REACTIONS (1)
  - Second primary malignancy [Not Recovered/Not Resolved]
